FAERS Safety Report 7142562-X (Version None)
Quarter: 2010Q4

REPORT INFORMATION
  Report Type: 
  Country: None (occurrence: None)
  Receive Date: 20101207
  Receipt Date: 20101129
  Transmission Date: 20110411
  Serious: Yes (Hospitalization, Other)
  Sender: FDA-Public Use
  Company Number: US-TEVA-256951USA

PATIENT
  Age: 35 Year
  Sex: Female

DRUGS (2)
  1. BACLOFEN [Suspect]
  2. PARACETAMOL [Suspect]

REACTIONS (2)
  - ENCEPHALOPATHY [None]
  - OVERDOSE [None]
